FAERS Safety Report 10901096 (Version 1)
Quarter: 2015Q1

REPORT INFORMATION
  Report Type: Spontaneous
  Country: BR (occurrence: BR)
  Receive Date: 20150310
  Receipt Date: 20150310
  Transmission Date: 20150721
  Serious: Yes (Hospitalization, Other)
  Sender: FDA-Public Use
  Company Number: BR-ASTRAZENECA-2015SE21159

PATIENT
  Age: 719 Month
  Sex: Female
  Weight: 66 kg

DRUGS (5)
  1. OMEPRAZOLE. [Suspect]
     Active Substance: OMEPRAZOLE
     Indication: PROPHYLAXIS AGAINST GASTROINTESTINAL ULCER
     Dosage: EVERY DAY, UNKNOWN DOSE
     Route: 048
     Dates: start: 201502
  2. ATENOL [Suspect]
     Active Substance: ATENOLOL
     Indication: ARRHYTHMIA
     Dosage: EVERY DAY, UNKNOWN DOSE
     Route: 048
     Dates: start: 201408
  3. UNSPECIFIED ANTI-INFLAMMATORY [Concomitant]
     Active Substance: UNSPECIFIED INGREDIENT
     Indication: ARTHRALGIA
     Route: 048
     Dates: start: 2014
  4. OMEPRAZOLE. [Suspect]
     Active Substance: OMEPRAZOLE
     Indication: PROPHYLAXIS AGAINST GASTROINTESTINAL ULCER
     Dosage: EVERY DAY, UNKNOWN DOSE
     Route: 048
     Dates: start: 201407, end: 201501
  5. DOSE D [Concomitant]
     Indication: VITAMIN D DECREASED
     Route: 048
     Dates: start: 2014

REACTIONS (11)
  - Fatigue [Not Recovered/Not Resolved]
  - Dysuria [Not Recovered/Not Resolved]
  - Faeces soft [Not Recovered/Not Resolved]
  - Dizziness [Not Recovered/Not Resolved]
  - Arrhythmia [Recovered/Resolved]
  - Nausea [Unknown]
  - Diarrhoea [Not Recovered/Not Resolved]
  - Nightmare [Not Recovered/Not Resolved]
  - Alopecia [Not Recovered/Not Resolved]
  - Blood urine present [Not Recovered/Not Resolved]
  - Abdominal pain upper [Unknown]

NARRATIVE: CASE EVENT DATE: 201408
